FAERS Safety Report 9958837 (Version 1)
Quarter: 2014Q1

REPORT INFORMATION
  Report Type: Report from Study
  Country: PR (occurrence: PR)
  Receive Date: 20140305
  Receipt Date: 20140305
  Transmission Date: 20141002
  Serious: No
  Sender: FDA-Public Use
  Company Number: PR-ABBVIE-13P-131-1110016-00

PATIENT
  Sex: Female

DRUGS (7)
  1. HUMIRA [Suspect]
     Indication: CROHN^S DISEASE
     Route: 058
     Dates: start: 2009, end: 20120208
  2. HUMIRA [Suspect]
     Route: 058
     Dates: start: 20120227, end: 20120409
  3. PREVACID [Concomitant]
     Indication: HIATUS HERNIA
     Route: 048
  4. GABAPENTIN [Concomitant]
     Indication: BACK DISORDER
     Dosage: AT BEDTIME
     Route: 048
     Dates: start: 20120220
  5. NAPROXEN [Concomitant]
     Indication: BACK DISORDER
     Route: 048
     Dates: start: 20120225
  6. PERCOCET [Concomitant]
     Indication: BACK DISORDER
     Route: 048
     Dates: start: 2010
  7. XANAX [Concomitant]
     Indication: SLEEP DISORDER
     Dosage: AT BEDTIME
     Route: 048
     Dates: start: 2010

REACTIONS (1)
  - Injection site haemorrhage [Unknown]
